FAERS Safety Report 4776950-3 (Version None)
Quarter: 2005Q3

REPORT INFORMATION
  Report Type: 
  Country: None (occurrence: None)
  Receive Date: 20050921
  Receipt Date: 20050912
  Transmission Date: 20060218
  Serious: Yes (Other)
  Sender: FDA-Public Use
  Company Number: 217372

PATIENT
  Age: 12 Year
  Sex: Male

DRUGS (1)
  1. XOLAIR [Suspect]
     Indication: ASTHMA
     Dosage: 375 MG, Q2W,
     Dates: start: 20050615, end: 20050801

REACTIONS (2)
  - CONDITION AGGRAVATED [None]
  - ECZEMA HERPETICUM [None]
